FAERS Safety Report 4494554-7 (Version None)
Quarter: 2004Q4

REPORT INFORMATION
  Report Type: 
  Country: None (occurrence: None)
  Receive Date: 20041103
  Receipt Date: 20041022
  Transmission Date: 20050328
  Serious: Yes (Life-Threatening, Hospitalization)
  Sender: FDA-Public Use
  Company Number: RENA-11177

PATIENT
  Age: 53 Year
  Sex: Male
  Weight: 54.5 kg

DRUGS (7)
  1. RENAGEL [Suspect]
     Indication: HYPERPHOSPHATAEMIA
     Dosage: 3 G TID PO
     Route: 048
     Dates: start: 20040209, end: 20040724
  2. RENAGEL [Suspect]
     Indication: HYPERPHOSPHATAEMIA
     Dates: start: 20030922, end: 20040208
  3. AZOSEMIDE [Concomitant]
  4. BENIDIPINE HYDROCHLORIDE [Concomitant]
  5. RANITIDINE HYDROCHLORIDE [Concomitant]
  6. CALTAN [Concomitant]
  7. CALCITRIOL [Concomitant]

REACTIONS (2)
  - INTESTINAL PERFORATION [None]
  - PERITONITIS [None]
